FAERS Safety Report 4590160-4 (Version None)
Quarter: 2005Q1

REPORT INFORMATION
  Report Type: 
  Country: None (occurrence: None)
  Receive Date: 20050217
  Receipt Date: 20050209
  Transmission Date: 20050727
  Serious: Yes (Other)
  Sender: FDA-Public Use
  Company Number: ESWYE419611FEB05

PATIENT
  Sex: Male

DRUGS (3)
  1. VANDRAL RETARD [Suspect]
     Indication: MAJOR DEPRESSION
     Dosage: SEE IMAGE
     Route: 064
     Dates: start: 20031201, end: 20040301
  2. VANDRAL RETARD [Suspect]
     Indication: MAJOR DEPRESSION
     Dosage: SEE IMAGE
     Route: 064
     Dates: start: 20040301
  3. IDALPREM (LORAZEPAM) [Concomitant]

REACTIONS (2)
  - CONGENITAL ORAL MALFORMATION [None]
  - DRUG EXPOSURE DURING PREGNANCY [None]
